FAERS Safety Report 7646991-7 (Version None)
Quarter: 2011Q3

REPORT INFORMATION
  Report Type: 
  Country: None (occurrence: None)
  Receive Date: 20110801
  Receipt Date: 20110718
  Transmission Date: 20111222
  Serious: Yes (Hospitalization)
  Sender: FDA-Public Use
  Company Number: DE-ELI_LILLY_AND_COMPANY-DE201104000104

PATIENT
  Age: 76 Year
  Sex: Female

DRUGS (6)
  1. ANALGESICS [Concomitant]
     Indication: PAIN
  2. VITAMIN D [Concomitant]
  3. ANTIHYPERTENSIVES [Concomitant]
     Indication: HYPERTENSION
  4. CALCIUM ACETATE [Concomitant]
  5. FORTEO [Suspect]
     Indication: OSTEOPOROSIS
     Dosage: UNK, QD
     Route: 058
     Dates: start: 20110105
  6. CARDIAC THERAPY [Concomitant]
     Indication: CARDIAC DISORDER

REACTIONS (4)
  - OPEN WOUND [None]
  - PAIN [None]
  - OEDEMA PERIPHERAL [None]
  - ERYSIPELAS [None]
